FAERS Safety Report 20905955 (Version 1)
Quarter: 2022Q2

REPORT INFORMATION
  Report Type: Spontaneous
  Country: US (occurrence: None)
  Receive Date: 20220602
  Receipt Date: 20220602
  Transmission Date: 20220721
  Serious: Yes (Hospitalization)
  Sender: FDA-Public Use
  Company Number: None

PATIENT
  Age: 57 Year
  Sex: Male
  Weight: 99.34 kg

DRUGS (1)
  1. CITALOPRAM [Suspect]
     Active Substance: CITALOPRAM HYDROBROMIDE
     Indication: Depression
     Dosage: ?40 MG EVERY DAY PO
     Route: 048
     Dates: start: 20051108, end: 20220420

REACTIONS (4)
  - Chest pain [None]
  - Dizziness [None]
  - Electrocardiogram QT prolonged [None]
  - Acute myocardial infarction [None]

NARRATIVE: CASE EVENT DATE: 20220417
